FAERS Safety Report 15560569 (Version 2)
Quarter: 2018Q4

REPORT INFORMATION
  Report Type: Spontaneous
  Country: DE (occurrence: DE)
  Receive Date: 20181029
  Receipt Date: 20181101
  Transmission Date: 20190205
  Serious: Yes (Other)
  Sender: FDA-Public Use
  Company Number: DE-PFIZER INC-2018439899

PATIENT
  Age: 73 Year
  Sex: Female
  Weight: 65 kg

DRUGS (5)
  1. METOPROLOL. [Concomitant]
     Active Substance: METOPROLOL
     Dosage: UNK
  2. RAMIPRIL. [Concomitant]
     Active Substance: RAMIPRIL
     Dosage: UNK
  3. PANTOPRAZOLE [Suspect]
     Active Substance: PANTOPRAZOLE
     Dosage: 160 MG, QD (20 MG TWO TABLETS FOUR TIMES DAILY AT 10. A.M., 3 P.M., AT 8 P.M AND 1 A.M.-2 A.M)
     Route: 065
  4. LORAZEPAM. [Concomitant]
     Active Substance: LORAZEPAM
     Dosage: 8 MG, QD (1 MG TWO TABLETS FOUR TIMES DAILY)
  5. L-THYROXIN [LEVOTHYROXINE SODIUM] [Concomitant]
     Dosage: UNK

REACTIONS (8)
  - Feeling abnormal [Unknown]
  - Headache [Unknown]
  - Overdose [Unknown]
  - Inappropriate schedule of product administration [Unknown]
  - Drug dependence [Unknown]
  - Anxiety disorder [Unknown]
  - Insomnia [Unknown]
  - Depression [Unknown]
